FAERS Safety Report 10035299 (Version 1)
Quarter: 2014Q1

REPORT INFORMATION
  Report Type: Spontaneous
  Country: US (occurrence: None)
  Receive Date: 20140306
  Receipt Date: 20140306
  Transmission Date: 20141002
  Serious: Yes (Other)
  Sender: FDA-Public Use
  Company Number: 163-21880-13121807

PATIENT
  Age: 64 Year
  Sex: Male

DRUGS (13)
  1. REVLIMID (LENALIDOMIDE) (5 MILLIGRAM, CAPSULES) [Suspect]
     Indication: PLASMA CELL MYELOMA
     Dosage: 1 IN 2 D
     Route: 048
     Dates: start: 20101020, end: 20131129
  2. FORTEO (TERIPARATIDE) [Concomitant]
  3. ANDRODERM (TESTOSTERONE) [Concomitant]
  4. DICLOFEN (DAN-MR) [Concomitant]
  5. FENTANYL [Concomitant]
  6. METRONIDAZOLE [Concomitant]
  7. TRIAMCINOLONE [Concomitant]
  8. MAG-OX (MAGNESIUM OXIDE) [Concomitant]
  9. DEXILANT (DEXLANSOPRAZOLE) [Concomitant]
  10. IMODIUM (LOPERAMIDE HYDROCHLORIDE) (LOPERAMIDE) [Concomitant]
  11. ACYLOVIR (ACICLOVIR) [Concomitant]
  12. BACTRIM (BACTRIM) (SULFAMETHOXAZOLE, TRIMETHOPRIM) [Concomitant]
  13. ZOMETA (ZOLEDRONIC ACID) (INJECTION) [Concomitant]

REACTIONS (2)
  - Pneumonia [None]
  - Skin lesion [None]
